FAERS Safety Report 14348844 (Version 10)
Quarter: 2018Q4

REPORT INFORMATION
  Report Type: Report from Study
  Country: GB (occurrence: GB)
  Receive Date: 20180104
  Receipt Date: 20181224
  Transmission Date: 20190204
  Serious: Yes (Other)
  Sender: FDA-Public Use
  Company Number: GB-ROCHE-2032197

PATIENT
  Sex: Female

DRUGS (3)
  1. PREGABALIN. [Concomitant]
     Active Substance: PREGABALIN
  2. GAMMANORM [Concomitant]
     Active Substance: HUMAN IMMUNOGLOBULIN G
  3. ROACTEMRA [Suspect]
     Active Substance: TOCILIZUMAB
     Indication: RHEUMATOID ARTHRITIS
     Route: 058
     Dates: start: 20171122

REACTIONS (35)
  - Lower limb fracture [Unknown]
  - Injection site mass [Unknown]
  - Pruritus [Unknown]
  - Vomiting [Unknown]
  - Drug ineffective [Unknown]
  - Feeling hot [Unknown]
  - Hyperhidrosis [Unknown]
  - Fall [Unknown]
  - Tinnitus [Unknown]
  - Syncope [Unknown]
  - Malaise [Unknown]
  - Middle insomnia [Unknown]
  - Infection [Unknown]
  - Decreased appetite [Unknown]
  - Fatigue [Unknown]
  - Scratch [Unknown]
  - Mass [Unknown]
  - Oropharyngeal pain [Unknown]
  - Swelling [Unknown]
  - Skin disorder [Unknown]
  - Peripheral swelling [Unknown]
  - Cough [Unknown]
  - Urinary tract infection [Unknown]
  - Back pain [Unknown]
  - Rash generalised [Unknown]
  - Rhinorrhoea [Unknown]
  - Inflammation [Unknown]
  - Nerve compression [Unknown]
  - Feeling abnormal [Unknown]
  - Pain [Unknown]
  - Rash pruritic [Unknown]
  - Oral disorder [Unknown]
  - Dizziness [Unknown]
  - Headache [Unknown]
  - Lower respiratory tract infection [Unknown]
